FAERS Safety Report 11083887 (Version 4)
Quarter: 2016Q2

REPORT INFORMATION
  Report Type: Spontaneous
  Country: JP (occurrence: JP)
  Receive Date: 20150501
  Receipt Date: 20160419
  Transmission Date: 20160815
  Serious: Yes (Death)
  Sender: FDA-Public Use
  Company Number: JP-MALLINCKRODT-T201502083

PATIENT
  Age: 67 Year
  Sex: Female
  Weight: 62 kg

DRUGS (33)
  1. METHADONE [Suspect]
     Active Substance: METHADONE HYDROCHLORIDE
     Dosage: 10 MG, (40 MG DAILY DOSE)
     Route: 048
     Dates: start: 20140813, end: 20140827
  2. METHADONE [Suspect]
     Active Substance: METHADONE HYDROCHLORIDE
     Dosage: 55 MG DAILY DOSE
     Route: 048
     Dates: start: 20141016, end: 20141225
  3. GABAPEN [Concomitant]
     Active Substance: GABAPENTIN
     Dosage: 600 MG
     Route: 048
     Dates: end: 20141029
  4. GABAPEN [Concomitant]
     Active Substance: GABAPENTIN
     Dosage: 400 MG
     Route: 048
     Dates: start: 20141030
  5. PICIBANIL [Concomitant]
     Active Substance: OK-432
     Dosage: 1 DF
     Route: 051
     Dates: start: 20140606, end: 20140606
  6. LASIX [Concomitant]
     Active Substance: FUROSEMIDE
     Dosage: 40 MG
     Route: 048
     Dates: end: 20150109
  7. LOXOPROFEN [Concomitant]
     Active Substance: LOXOPROFEN
     Dosage: 60 MG
     Route: 048
  8. MUCOSTA [Concomitant]
     Active Substance: REBAMIPIDE
     Dosage: 300 MG
     Route: 048
     Dates: end: 20150109
  9. LYRICA [Concomitant]
     Active Substance: PREGABALIN
     Indication: ANALGESIC THERAPY
     Dosage: 50 MG
     Route: 048
     Dates: start: 20141212, end: 20141225
  10. METHADONE [Suspect]
     Active Substance: METHADONE HYDROCHLORIDE
     Dosage: 15 MG (60 MG DAILY DOSE)
     Route: 048
     Dates: start: 20140828, end: 20140910
  11. METHADONE [Suspect]
     Active Substance: METHADONE HYDROCHLORIDE
     Dosage: 45 MG, DAILY DOSE
     Route: 048
     Dates: start: 20141226, end: 20150105
  12. OXINORM [Concomitant]
     Active Substance: OXYCODONE HYDROCHLORIDE
     Dosage: 5MG, P.R.N.
     Route: 048
     Dates: start: 20140527
  13. TRAMCET [Concomitant]
     Active Substance: ACETAMINOPHEN\TRAMADOL
     Dosage: 4 DF
     Route: 048
     Dates: end: 20140604
  14. PURSENNID [Concomitant]
     Active Substance: SENNOSIDES A AND B
     Dosage: 12 MG
     Route: 048
     Dates: end: 20150109
  15. MORPHINE HYDROCHLORIDE [Concomitant]
     Active Substance: MORPHINE HYDROCHLORIDE
     Indication: ANALGESIC THERAPY
     Dosage: 15 MG
     Route: 051
     Dates: start: 20141224, end: 20150108
  16. METHADONE [Suspect]
     Active Substance: METHADONE HYDROCHLORIDE
     Dosage: 5 MG, (20 MG DAILY DOSE)
     Route: 048
     Dates: start: 20140626, end: 20140716
  17. METHADONE [Suspect]
     Active Substance: METHADONE HYDROCHLORIDE
     Dosage: 15 MG, (60 MG DAILY DOSE)
     Route: 048
     Dates: start: 20141002, end: 20141015
  18. CELECOX [Concomitant]
     Active Substance: CELECOXIB
     Indication: ANALGESIC THERAPY
     Dosage: 200 MG
     Route: 048
     Dates: end: 20141218
  19. PREDONINE [Concomitant]
     Active Substance: PREDNISOLONE\PREDNISOLONE ACETATE\PREDNISOLONE SODIUM SUCCINATE
     Dosage: 10 MG
     Route: 048
     Dates: start: 20140724
  20. PREDONINE [Concomitant]
     Active Substance: PREDNISOLONE\PREDNISOLONE ACETATE\PREDNISOLONE SODIUM SUCCINATE
     Dosage: 20 MG
     Route: 048
     Dates: end: 20150109
  21. FLAGYL [Concomitant]
     Active Substance: METRONIDAZOLE\METRONIDAZOLE HYDROCHLORIDE
     Dosage: 750 MG
     Route: 048
     Dates: start: 20140710, end: 20140723
  22. METHADONE [Suspect]
     Active Substance: METHADONE HYDROCHLORIDE
     Dosage: 10 MG, (30 MG DAILY DOSE)
     Route: 048
     Dates: start: 20140717, end: 20140812
  23. METHADONE [Suspect]
     Active Substance: METHADONE HYDROCHLORIDE
     Dosage: 20 MG (80 MG DAILY DOSE)
     Route: 048
     Dates: start: 20140911, end: 20141001
  24. METHADONE [Suspect]
     Active Substance: METHADONE HYDROCHLORIDE
     Dosage: 35 MG DAILY DOSE
     Route: 048
     Dates: start: 20150106, end: 20150109
  25. KEPPRA [Concomitant]
     Active Substance: LEVETIRACETAM
     Dosage: 500 MG
     Route: 048
     Dates: end: 20141208
  26. PREDONINE [Concomitant]
     Active Substance: PREDNISOLONE\PREDNISOLONE ACETATE\PREDNISOLONE SODIUM SUCCINATE
     Dosage: 5 MG
     Route: 048
     Dates: end: 20140723
  27. CEFEPIME HYDROCHLORIDE. [Concomitant]
     Active Substance: CEFEPIME HYDROCHLORIDE
     Dosage: 2 G
     Route: 051
     Dates: start: 20140602, end: 20140605
  28. VOTRIENT [Concomitant]
     Active Substance: PAZOPANIB HYDROCHLORIDE
     Dosage: 800 MG
     Route: 048
     Dates: end: 20141202
  29. CLINDAMYCIN [Concomitant]
     Active Substance: CLINDAMYCIN\CLINDAMYCIN PHOSPHATE
     Dosage: 1200 MG
     Route: 051
     Dates: start: 20140602, end: 20140605
  30. SULBACILLIN [Concomitant]
     Active Substance: AMPICILLIN SODIUM\SULBACTAM SODIUM
     Dosage: 6 G
     Route: 051
     Dates: start: 20140606, end: 20140611
  31. FAMOTIDINE. [Concomitant]
     Active Substance: FAMOTIDINE
     Dosage: 40 MG
     Route: 048
     Dates: end: 20140522
  32. NEXIUM [Concomitant]
     Active Substance: ESOMEPRAZOLE MAGNESIUM
     Dosage: 20 MG
     Route: 048
     Dates: end: 20150109
  33. METHADONE [Suspect]
     Active Substance: METHADONE HYDROCHLORIDE
     Indication: CANCER PAIN
     Dosage: 5 MG, (15 MG DAILY DOSE)
     Route: 048
     Dates: start: 20140528, end: 20140625

REACTIONS (7)
  - Angiosarcoma [Fatal]
  - Somnolence [Recovering/Resolving]
  - Malaise [Recovered/Resolved]
  - Pyrexia [Recovered/Resolved]
  - Nausea [Recovering/Resolving]
  - Hepatic function abnormal [Not Recovered/Not Resolved]
  - Constipation [Recovered/Resolved]

NARRATIVE: CASE EVENT DATE: 20140528
